FAERS Safety Report 6043774-9 (Version None)
Quarter: 2009Q1

REPORT INFORMATION
  Report Type: 
  Country: None (occurrence: None)
  Receive Date: 20090120
  Receipt Date: 20090115
  Transmission Date: 20090719
  Serious: Yes (Life-Threatening)
  Sender: FDA-Public Use
  Company Number: PHHY2009JP01648

PATIENT
  Sex: Male

DRUGS (3)
  1. SALAGEN [Suspect]
     Indication: DRY MOUTH
     Dosage: 5 MG, BID
     Route: 048
     Dates: start: 20081002, end: 20081113
  2. ARTIST [Concomitant]
     Dosage: 10 MG, UNK
  3. NIFEDIPINE [Concomitant]
     Dosage: 20 MG, UNK

REACTIONS (2)
  - ANGINA PECTORIS [None]
  - HEART RATE DECREASED [None]
